FAERS Safety Report 10363011 (Version 3)
Quarter: 2017Q3

REPORT INFORMATION
  Report Type: Report from Study
  Country: KR (occurrence: KR)
  Receive Date: 20140805
  Receipt Date: 20170925
  Transmission Date: 20171127
  Serious: Yes (Death, Other)
  Sender: FDA-Public Use
  Company Number: KR-ASTELLAS-2014JP015838AA

PATIENT
  Age: 82 Year
  Sex: Male

DRUGS (8)
  1. AVODART [Concomitant]
     Active Substance: DUTASTERIDE
     Indication: PROSTATE CANCER
     Route: 048
     Dates: start: 20130807, end: 20140709
  2. HARNAL [Concomitant]
     Active Substance: TAMSULOSIN HYDROCHLORIDE
     Indication: PROSTATE CANCER
     Dosage: 0.2 MG, ONCE DAILY
     Route: 048
     Dates: start: 20130807, end: 20140709
  3. NEURONTIN [Concomitant]
     Active Substance: GABAPENTIN
     Indication: PROSTATE CANCER
     Dosage: 600 MG DAILY DOSE, TWICE DAILY
     Route: 048
     Dates: start: 20131216, end: 20140709
  4. GANATON [Concomitant]
     Active Substance: ITOPRIDE
     Indication: PROSTATE CANCER
     Dosage: 150 MG DAILY DOSE, THRICE DAILY
     Route: 048
     Dates: start: 20131007, end: 20140709
  5. VESICARE [Concomitant]
     Active Substance: SOLIFENACIN SUCCINATE
     Indication: PROSTATE CANCER
     Route: 048
     Dates: start: 20130904, end: 20140709
  6. ENZALUTAMIDE [Suspect]
     Active Substance: ENZALUTAMIDE
     Indication: HORMONE-REFRACTORY PROSTATE CANCER
     Dosage: UNK, UNKNOWN FREQ.
     Route: 048
  7. MYPOL [Concomitant]
     Indication: PROSTATE CANCER
     Dosage: 4 DF DAILY DOSE, TWICE DAILY
     Route: 048
     Dates: start: 20140625, end: 20140709
  8. ALBIS [Concomitant]
     Active Substance: BISMUTH SUBCITRATE\RANITIDINE HYDROCHLORIDE\SUCRALFATE
     Indication: PROSTATE CANCER
     Dosage: 2 DF DAILY DOSE, TWICE DAILY
     Route: 048
     Dates: start: 20131216, end: 20140709

REACTIONS (1)
  - Malignant neoplasm progression [Fatal]

NARRATIVE: CASE EVENT DATE: 20140710
